APPROVED DRUG PRODUCT: TRISENOX
Active Ingredient: ARSENIC TRIOXIDE
Strength: 1MG/ML **Federal Register determination that product was not discontinued or withdrawn for safety or effectiveness reasons**
Dosage Form/Route: INJECTABLE;INJECTION
Application: N021248 | Product #001
Applicant: CEPHALON INC
Approved: Sep 25, 2000 | RLD: Yes | RS: No | Type: DISCN